FAERS Safety Report 14676158 (Version 1)
Quarter: 2018Q1

REPORT INFORMATION
  Report Type: Spontaneous
  Country: ME (occurrence: ME)
  Receive Date: 20180323
  Receipt Date: 20180323
  Transmission Date: 20180509
  Serious: Yes (Other)
  Sender: FDA-Public Use
  Company Number: PHHY2018ME045959

PATIENT
  Age: 61 Year
  Sex: Female

DRUGS (3)
  1. LENDACIN [Suspect]
     Active Substance: CEFTRIAXONE SODIUM
     Indication: FURUNCLE
     Dosage: 2 G (1X1), UNK (FOR 5 DAYS)
     Route: 042
     Dates: start: 20180310, end: 20180312
  2. LENDACIN [Suspect]
     Active Substance: CEFTRIAXONE SODIUM
     Indication: CARBUNCLE
  3. LENDACIN [Suspect]
     Active Substance: CEFTRIAXONE SODIUM
     Indication: ABSCESS

REACTIONS (7)
  - Tachycardia [Recovered/Resolved]
  - Abdominal pain upper [Recovered/Resolved]
  - Dizziness [Recovered/Resolved]
  - Blood pressure increased [Recovered/Resolved]
  - Nausea [Recovered/Resolved]
  - Malaise [Recovered/Resolved]
  - Rash [Unknown]

NARRATIVE: CASE EVENT DATE: 20180312
